FAERS Safety Report 10057953 (Version 2)
Quarter: 2014Q2

REPORT INFORMATION
  Report Type: Spontaneous
  Country: JP (occurrence: JP)
  Receive Date: 20140404
  Receipt Date: 20140527
  Transmission Date: 20141212
  Serious: Yes (Hospitalization)
  Sender: FDA-Public Use
  Company Number: JP-ROCHE-1375465

PATIENT
  Age: 43 Year
  Sex: Female
  Weight: 49 kg

DRUGS (9)
  1. ACTEMRA [Suspect]
     Indication: RHEUMATOID ARTHRITIS
     Route: 058
     Dates: start: 20131218, end: 20140212
  2. PREDNISOLONE [Concomitant]
     Indication: RHEUMATOID ARTHRITIS
     Dosage: 4-8 MG
     Route: 048
     Dates: start: 20121030
  3. PREDNISOLONE [Concomitant]
     Indication: RHEUMATOID ARTHRITIS
     Route: 048
     Dates: start: 20131106, end: 20140415
  4. PREDNISOLONE [Concomitant]
     Indication: RHEUMATOID ARTHRITIS
     Route: 048
     Dates: start: 20140416
  5. LOXONIN [Concomitant]
     Indication: RHEUMATOID ARTHRITIS
     Dosage: WHEN IT IS PAINFUL
     Route: 048
     Dates: start: 20120501
  6. LOXONIN [Concomitant]
     Indication: RHEUMATOID ARTHRITIS
     Route: 048
     Dates: start: 20130814, end: 20131217
  7. LOXONIN [Concomitant]
     Indication: RHEUMATOID ARTHRITIS
     Route: 048
     Dates: start: 20131218, end: 20140218
  8. MUCOSTA [Concomitant]
     Indication: PROPHYLAXIS
     Dosage: WHEN IT IS PAINFUL
     Route: 048
     Dates: start: 20120501, end: 20140226
  9. TAKEPRON [Concomitant]
     Indication: GASTROOESOPHAGEAL REFLUX DISEASE
     Route: 048
     Dates: start: 20121030, end: 20140226

REACTIONS (6)
  - Anaemia [Recovering/Resolving]
  - Hypoalbuminaemia [Recovered/Resolved]
  - Melaena [Unknown]
  - Colitis ulcerative [Unknown]
  - Chronic gastritis [Unknown]
  - Hiatus hernia [Unknown]
